FAERS Safety Report 5347542-2 (Version None)
Quarter: 2007Q2

REPORT INFORMATION
  Report Type: 
  Country: None (occurrence: None)
  Receive Date: 20070606
  Receipt Date: 20070531
  Transmission Date: 20071010
  Serious: Yes (Hospitalization)
  Sender: FDA-Public Use
  Company Number: US-ASTRAZENECA-2007UW13361

PATIENT
  Age: 79 Year
  Sex: Female
  Weight: 79.4 kg

DRUGS (6)
  1. TOPROL-XL [Suspect]
     Route: 048
     Dates: end: 20070201
  2. DIOVAN [Concomitant]
  3. SYNTHROID [Concomitant]
  4. ASPIRIN [Concomitant]
  5. WARFARIN SODIUM [Concomitant]
  6. METOPROLOL TARTRATE [Concomitant]
     Dates: start: 20070201

REACTIONS (1)
  - HYPERTENSION [None]
